FAERS Safety Report 8768518 (Version 1)
Quarter: 2012Q4

REPORT INFORMATION
  Report Type: 
  Country: BR (occurrence: BR)
  Receive Date: 20120905
  Receipt Date: 20120905
  Transmission Date: 20130627
  Serious: Yes (Other)
  Sender: FDA-Public Use
  Company Number: BR-ROCHE-1009382

PATIENT

DRUGS (2)
  1. CEFTRIAXONE SODIUM [Suspect]
     Indication: PYELONEPHRITIS
     Dosage: suspended after 15 days
     Route: 064
  2. CEFTRIAXONE SODIUM [Suspect]
     Indication: TRACHEOBRONCHITIS
     Route: 065

REACTIONS (2)
  - Small for dates baby [Unknown]
  - Maternal exposure timing unspecified [Unknown]
